FAERS Safety Report 24563611 (Version 2)
Quarter: 2025Q4

REPORT INFORMATION
  Report Type: Spontaneous
  Country: US (occurrence: US)
  Receive Date: 20241030
  Receipt Date: 20251201
  Transmission Date: 20260117
  Serious: No
  Sender: MERCK SHARP & DOHME LLC
  Company Number: None

PATIENT
  Sex: Female
  Weight: 70.7 kg

DRUGS (20)
  1. WINREVAIR [Suspect]
     Active Substance: SOTATERCEPT-CSRK
     Indication: Product used for unknown indication
     Dosage: DOSE DESCRIPTION : UNK
  2. WINREVAIR [Suspect]
     Active Substance: SOTATERCEPT-CSRK
  3. WINREVAIR [Suspect]
     Active Substance: SOTATERCEPT-CSRK
  4. WINREVAIR [Suspect]
     Active Substance: SOTATERCEPT-CSRK
  5. REMODULIN [Suspect]
     Active Substance: TREPROSTINIL
     Indication: Pulmonary arterial hypertension
     Dosage: DOSE DESCRIPTION : UNK, CONTINUING?CONCENTRATION: 5.0 MILLIGRAM PER MILLILITRE
     Route: 058
     Dates: start: 20221012
  6. REMODULIN [Suspect]
     Active Substance: TREPROSTINIL
     Indication: Pulmonary arterial hypertension
     Dosage: DOSE DESCRIPTION : 0.04467  G/KG (SELF-FILL CASSETTE WITH 3 ML, RATE OF 40 MCL PER HOUR), CONTINUING
     Route: 058
  7. FUROSEMIDE [Concomitant]
     Active Substance: FUROSEMIDE
     Dosage: DOSE DESCRIPTION : UNK
  8. SPIRONOLACTONE [Concomitant]
     Active Substance: SPIRONOLACTONE
     Dosage: DOSE DESCRIPTION : UNK
  9. AMITRIPTYLINE HYDROCHLORIDE [Concomitant]
     Active Substance: AMITRIPTYLINE HYDROCHLORIDE
     Dosage: DOSE DESCRIPTION : UNK
  10. CLONIDINE [Concomitant]
     Active Substance: CLONIDINE
     Dosage: DOSE DESCRIPTION : UNK
  11. GABAPENTIN [Concomitant]
     Active Substance: GABAPENTIN
     Dosage: DOSE DESCRIPTION : UNK
  12. KETAMINE [Concomitant]
     Active Substance: KETAMINE
     Dosage: DOSE DESCRIPTION : UNK
  13. KETOPROFEN [Concomitant]
     Active Substance: KETOPROFEN
     Dosage: DOSE DESCRIPTION : UNK
  14. LECITHIN [Concomitant]
     Active Substance: LECITHIN
     Dosage: DOSE DESCRIPTION : UNK
  15. LIDOCAINE [Concomitant]
     Active Substance: LIDOCAINE
     Dosage: DOSE DESCRIPTION : UNK
  16. POLOXAMER [Concomitant]
     Active Substance: POLOXAMER
     Dosage: DOSE DESCRIPTION : UNK
  17. AMBRISENTAN [Concomitant]
     Active Substance: AMBRISENTAN
     Dosage: DOSE DESCRIPTION : UNK
  18. SENNA S [Concomitant]
     Active Substance: DOCUSATE SODIUM\SENNOSIDES
     Dosage: DOSE DESCRIPTION : UNK
  19. SILDENAFIL [Concomitant]
     Active Substance: SILDENAFIL
     Dosage: DOSE DESCRIPTION : UNK
  20. INSULIN ASPART [Concomitant]
     Active Substance: INSULIN ASPART
     Dosage: DOSE DESCRIPTION : UNK

REACTIONS (3)
  - Medical device site pain [Unknown]
  - Therapeutic response unexpected [Unknown]
  - Medical device site swelling [Unknown]
